FAERS Safety Report 7818053-7 (Version None)
Quarter: 2011Q4

REPORT INFORMATION
  Report Type: 
  Country: None (occurrence: None)
  Receive Date: 20111017
  Receipt Date: 20111004
  Transmission Date: 20120403
  Serious: No
  Sender: FDA-Public Use
  Company Number: US-B.I. PHARMACEUTICALS,INC./RIDGEFIELD-2011-BP-23492BP

PATIENT
  Sex: Female

DRUGS (7)
  1. XANAX [Concomitant]
     Indication: ANXIETY
  2. PRADAXA [Suspect]
     Indication: ATRIAL FIBRILLATION
     Dosage: 300 MG
     Route: 048
     Dates: start: 20110901
  3. LOSARTAN POTASSIUM [Concomitant]
     Indication: HYPERTENSION
  4. TYLENOL-500 [Concomitant]
     Indication: ANXIETY
  5. MAXAIR [Concomitant]
     Indication: CHRONIC OBSTRUCTIVE PULMONARY DISEASE
     Route: 055
  6. SYNTHROID [Concomitant]
     Indication: HYPOTHYROIDISM
  7. HYDROCHLOROTHIAZIDE [Concomitant]
     Indication: HYPERTENSION

REACTIONS (7)
  - FLUSHING [None]
  - OEDEMA PERIPHERAL [None]
  - FEELING HOT [None]
  - ERYTHEMA [None]
  - DYSPNOEA [None]
  - FLATULENCE [None]
  - RASH MACULAR [None]
